FAERS Safety Report 18002816 (Version 2)
Quarter: 2021Q3

REPORT INFORMATION
  Report Type: Spontaneous
  Country: US (occurrence: US)
  Receive Date: 20200709
  Receipt Date: 20210709
  Transmission Date: 20211014
  Serious: No
  Sender: FDA-Public Use
  Company Number: US-ASTELLAS-2019US030903

PATIENT
  Sex: Male

DRUGS (2)
  1. PUMPKIN SEED OIL                   /01517303/ [Concomitant]
     Indication: MALE REPRODUCTIVE TRACT DISORDER
     Dosage: 1 DF (1 DOSE IN THE MORNING) UNKNOWN FREQ.
     Route: 065
  2. MYRBETRIQ [Suspect]
     Active Substance: MIRABEGRON
     Indication: MICTURITION URGENCY
     Route: 065
     Dates: start: 201907

REACTIONS (3)
  - Disturbance in sexual arousal [Unknown]
  - Amnesia [Unknown]
  - Urine analysis abnormal [Unknown]
